FAERS Safety Report 13600126 (Version 2)
Quarter: 2017Q3

REPORT INFORMATION
  Report Type: Spontaneous
  Country: US (occurrence: US)
  Receive Date: 20170601
  Receipt Date: 20170823
  Transmission Date: 20171127
  Serious: No
  Sender: FDA-Public Use
  Company Number: US-THE MEDICINES COMPANY-US-MDCO-17-00097

PATIENT
  Age: 37 Year
  Sex: Female
  Weight: 80.3 kg

DRUGS (4)
  1. ORBACTIV [Suspect]
     Active Substance: ORITAVANCIN
     Indication: CELLULITIS
     Dosage: 5.5 ML/MIN
     Route: 041
     Dates: start: 20170217, end: 20170217
  2. FLUCONAZOLE. [Concomitant]
     Active Substance: FLUCONAZOLE
     Indication: PRODUCT USED FOR UNKNOWN INDICATION
     Route: 048
     Dates: start: 201702
  3. METFORMIN [Concomitant]
     Active Substance: METFORMIN HYDROCHLORIDE
     Indication: PRODUCT USED FOR UNKNOWN INDICATION
     Route: 048
     Dates: start: 201702
  4. ORBACTIV [Suspect]
     Active Substance: ORITAVANCIN
     Dosage: 150 ML/HOUR
     Route: 041
     Dates: start: 20170217, end: 20170217

REACTIONS (8)
  - Flushing [Recovered/Resolved]
  - Pruritus generalised [Recovered/Resolved]
  - Red man syndrome [Recovered/Resolved]
  - Rash [Recovered/Resolved]
  - Urticaria [Recovered/Resolved]
  - Generalised erythema [Recovered/Resolved]
  - Skin irritation [Recovered/Resolved]
  - Skin burning sensation [Recovered/Resolved]

NARRATIVE: CASE EVENT DATE: 20170217
